FAERS Safety Report 17082136 (Version 10)
Quarter: 2021Q3

REPORT INFORMATION
  Report Type: Report from Study
  Country: DE (occurrence: DE)
  Receive Date: 20191127
  Receipt Date: 20210929
  Transmission Date: 20211014
  Serious: Yes (Life-Threatening, Hospitalization)
  Sender: FDA-Public Use
  Company Number: NVSC2019DE038454

PATIENT
  Age: 68 Year
  Sex: Male
  Weight: 70 kg

DRUGS (4)
  1. EXTRACORPOREAL PHOTOPHERESIS [Suspect]
     Active Substance: UNSPECIFIED INGREDIENT
     Indication: CHRONIC GRAFT VERSUS HOST DISEASE
     Dosage: NO TREATMENT
     Route: 065
  2. EXTRACORPOREAL PHOTOPHERESIS [Suspect]
     Active Substance: UNSPECIFIED INGREDIENT
     Dosage: UNK, BIW
     Route: 017
     Dates: start: 20191122
  3. PREDNISOLONE. [Concomitant]
     Active Substance: PREDNISOLONE
     Indication: CHRONIC GRAFT VERSUS HOST DISEASE
     Dosage: 75 MG, QD
     Route: 048
     Dates: start: 20191106
  4. EVEROLIMUS. [Suspect]
     Active Substance: EVEROLIMUS
     Indication: CHRONIC GRAFT VERSUS HOST DISEASE
     Dosage: UNK
     Route: 048
     Dates: start: 20191106, end: 20191110

REACTIONS (1)
  - Atypical haemolytic uraemic syndrome [Recovered/Resolved]

NARRATIVE: CASE EVENT DATE: 20191110
